FAERS Safety Report 18227669 (Version 2)
Quarter: 2020Q3

REPORT INFORMATION
  Report Type: Spontaneous
  Country: US (occurrence: US)
  Receive Date: 20200903
  Receipt Date: 20200930
  Transmission Date: 20201103
  Serious: Yes (Other)
  Sender: FDA-Public Use
  Company Number: US-GLAXOSMITHKLINE-US2020173718

PATIENT
  Age: 77 Year
  Sex: Male

DRUGS (4)
  1. FLOVENT HFA [Suspect]
     Active Substance: FLUTICASONE PROPIONATE
     Indication: COUGH
     Dosage: 2 PUFF(S), BID
     Route: 055
     Dates: start: 202006
  2. FLOVENT HFA [Suspect]
     Active Substance: FLUTICASONE PROPIONATE
     Indication: PRODUCT USED FOR UNKNOWN INDICATION
     Dosage: 2 PUFF(S), BID (2 PUFF MORNING, 2 PUFFBEFORE BED TIME)
     Route: 055
  3. ALBUTEROL SULFATE. [Concomitant]
     Active Substance: ALBUTEROL SULFATE
     Indication: PRODUCT USED FOR UNKNOWN INDICATION
     Dosage: UNK
  4. FLOVENT HFA [Suspect]
     Active Substance: FLUTICASONE PROPIONATE
     Indication: WHEEZING

REACTIONS (8)
  - Paraesthesia [Recovered/Resolved]
  - Hallucination, visual [Unknown]
  - Wrong technique in device usage process [Unknown]
  - Throat irritation [Recovered/Resolved]
  - Dizziness [Recovered/Resolved]
  - Loss of consciousness [Recovered/Resolved]
  - Tremor [Recovered/Resolved]
  - Product use in unapproved indication [Unknown]

NARRATIVE: CASE EVENT DATE: 20200826
